FAERS Safety Report 21139389 (Version 3)
Quarter: 2023Q1

REPORT INFORMATION
  Report Type: Spontaneous
  Country: US (occurrence: US)
  Receive Date: 20220727
  Receipt Date: 20230302
  Transmission Date: 20230418
  Serious: Yes (Other)
  Sender: FDA-Public Use
  Company Number: US-PFIZER INC-202201011431

PATIENT
  Age: 52 Year
  Sex: Male

DRUGS (1)
  1. XELJANZ XR [Suspect]
     Active Substance: TOFACITINIB CITRATE
     Dosage: 11 MG
     Dates: start: 202207

REACTIONS (6)
  - Nephrolithiasis [Unknown]
  - Peripheral swelling [Unknown]
  - Pain [Recovered/Resolved]
  - Burning sensation [Recovered/Resolved]
  - Condition aggravated [Recovered/Resolved]
  - Sciatica [Recovered/Resolved]

NARRATIVE: CASE EVENT DATE: 20230201
